FAERS Safety Report 11272342 (Version 2)
Quarter: 2015Q4

REPORT INFORMATION
  Report Type: Report from Study
  Country: JP (occurrence: JP)
  Receive Date: 20150715
  Receipt Date: 20151123
  Transmission Date: 20160304
  Serious: Yes (Hospitalization)
  Sender: FDA-Public Use
  Company Number: JP-BIOGENIDEC-2007BI026988

PATIENT
  Age: 56 Year
  Sex: Female

DRUGS (16)
  1. TANDOSPIRONE CITRATE [Concomitant]
     Active Substance: TANDOSPIRONE CITRATE
     Dates: start: 20071119
  2. PREDNISOLONE. [Concomitant]
     Active Substance: PREDNISOLONE
     Dates: start: 200710, end: 200710
  3. LOXONIN [Concomitant]
     Active Substance: LOXOPROFEN SODIUM
     Dates: start: 20071119
  4. BACLOFEN. [Concomitant]
     Active Substance: BACLOFEN
     Dates: start: 20071119
  5. BENFOTIAMINE [Concomitant]
     Active Substance: BENFOTIAMINE
     Dates: start: 20071119
  6. ALENDRONATE SODIUM HYDRATE [Concomitant]
     Active Substance: ALENDRONATE SODIUM
     Dates: start: 20071119
  7. REBAMIPIDE [Concomitant]
     Active Substance: REBAMIPIDE
     Dates: start: 20071119
  8. TOCOPHEROL NICOTINATE [Concomitant]
     Active Substance: TOCOPHERYL NICOTINATE, D-.ALPHA.
     Dates: start: 20071119
  9. ROXATIDINE ACETATE HYDROCHLORIDE [Concomitant]
     Active Substance: ROXATIDINE ACETATE HYDROCHLORIDE
     Dates: start: 20071119
  10. SULPIRIDE [Concomitant]
     Active Substance: SULPIRIDE
     Dates: start: 20071119
  11. METHYLPREDNISOLONE. [Concomitant]
     Active Substance: METHYLPREDNISOLONE
     Dates: start: 200710, end: 200710
  12. DIAZEPAM. [Concomitant]
     Active Substance: DIAZEPAM
     Dates: start: 20071119
  13. PREDNISOLONE. [Concomitant]
     Active Substance: PREDNISOLONE
     Dates: start: 20071119
  14. AVONEX [Suspect]
     Active Substance: INTERFERON BETA-1A
     Indication: MULTIPLE SCLEROSIS
     Route: 030
     Dates: start: 20071119, end: 20090209
  15. ASPIRIN. [Concomitant]
     Active Substance: ASPIRIN
     Dates: start: 20071119
  16. MAGNESIUM OXIDE. [Concomitant]
     Active Substance: MAGNESIUM OXIDE
     Dates: start: 20071119

REACTIONS (2)
  - Multiple sclerosis relapse [Recovered/Resolved]
  - Optic neuritis [Recovered/Resolved]

NARRATIVE: CASE EVENT DATE: 20071225
